FAERS Safety Report 21205231 (Version 1)
Quarter: 2022Q3

REPORT INFORMATION
  Report Type: Spontaneous
  Country: CN (occurrence: CN)
  Receive Date: 20220812
  Receipt Date: 20220812
  Transmission Date: 20221027
  Serious: Yes (Hospitalization, Other)
  Sender: FDA-Public Use
  Company Number: CN-Nexus Pharma-000094

PATIENT
  Age: 55 Year
  Sex: Male

DRUGS (4)
  1. COLISTIMETHATE SODIUM [Suspect]
     Active Substance: COLISTIMETHATE SODIUM
     Indication: Klebsiella infection
  2. POLYMYXIN B [Suspect]
     Active Substance: POLYMYXIN B
     Indication: Klebsiella infection
  3. TIGECYCLINE [Suspect]
     Active Substance: TIGECYCLINE
     Indication: Klebsiella infection
  4. IMIPENEM [Suspect]
     Active Substance: IMIPENEM
     Indication: Klebsiella infection

REACTIONS (3)
  - Klebsiella infection [Unknown]
  - Drug resistance [Unknown]
  - Treatment failure [Unknown]
